FAERS Safety Report 6260221-2 (Version None)
Quarter: 2009Q3

REPORT INFORMATION
  Report Type: 
  Country: None (occurrence: None)
  Receive Date: 20090708
  Receipt Date: 20090701
  Transmission Date: 20100115
  Serious: Yes (Other)
  Sender: FDA-Public Use
  Company Number: B0582678A

PATIENT
  Age: 52 Year
  Sex: Male

DRUGS (1)
  1. ZEFFIX [Suspect]
     Dosage: 100MG PER DAY
     Route: 065
     Dates: start: 20090513

REACTIONS (1)
  - HEPATIC ENZYME INCREASED [None]
